FAERS Safety Report 12740069 (Version 1)
Quarter: 2016Q3

REPORT INFORMATION
  Report Type: Spontaneous
  Country: GB (occurrence: GB)
  Receive Date: 20160913
  Receipt Date: 20160913
  Transmission Date: 20161109
  Serious: Yes (Other)
  Sender: FDA-Public Use
  Company Number: ALCN2016GB006130

PATIENT
  Age: 72 Year
  Sex: Female
  Weight: 65.31 kg

DRUGS (1)
  1. MAXITROL [Suspect]
     Active Substance: DEXAMETHASONE\NEOMYCIN SULFATE\POLYMYXIN B SULFATE
     Dosage: 4 GTT, QD
     Route: 047
     Dates: start: 20160809, end: 20160824

REACTIONS (9)
  - Lacrimation increased [Unknown]
  - Vision blurred [Unknown]
  - Photophobia [Unknown]
  - Eyelid disorder [Unknown]
  - Dyskinesia [Unknown]
  - Eye pain [Unknown]
  - Foreign body sensation in eyes [Unknown]
  - Eye pruritus [Unknown]
  - Ocular hyperaemia [Unknown]

NARRATIVE: CASE EVENT DATE: 20160816
